FAERS Safety Report 10068422 (Version 1)
Quarter: 2014Q2

REPORT INFORMATION
  Report Type: Spontaneous
  Country: IR (occurrence: IR)
  Receive Date: 20140409
  Receipt Date: 20140409
  Transmission Date: 20141212
  Serious: Yes (Hospitalization)
  Sender: FDA-Public Use
  Company Number: IR-MILLENNIUM PHARMACEUTICALS, INC.-2014TUS002658

PATIENT
  Age: 25 Year
  Sex: Female

DRUGS (1)
  1. COLCHICINE [Suspect]

REACTIONS (7)
  - Restlessness [Recovered/Resolved]
  - Back pain [Recovered/Resolved]
  - Vomiting [Recovered/Resolved]
  - Intentional overdose [Recovered/Resolved]
  - Ear pain [Recovered/Resolved]
  - Thrombocytopenia [Recovered/Resolved]
  - Oropharyngeal pain [Recovered/Resolved]
